FAERS Safety Report 20562283 (Version 2)
Quarter: 2022Q1

REPORT INFORMATION
  Report Type: Report from Study
  Country: IL (occurrence: IL)
  Receive Date: 20220307
  Receipt Date: 20220327
  Transmission Date: 20220423
  Serious: Yes (Hospitalization, Other)
  Sender: FDA-Public Use
  Company Number: IL-ABBVIE-22K-082-4304483-00

PATIENT
  Age: 70 Year
  Sex: Male

DRUGS (2)
  1. CARBIDOPA\LEVODOPA [Suspect]
     Active Substance: CARBIDOPA\LEVODOPA
     Indication: Parkinson^s disease
     Dosage: MORNING DOSAGE(ML)  10.0, CONTINUOUS DOSAGE (ML/H)  2.5, EXTRA DOSAGE (ML)  2.0
     Route: 050
     Dates: start: 20220221, end: 20220303
  2. CARBIDOPA\LEVODOPA [Suspect]
     Active Substance: CARBIDOPA\LEVODOPA

REACTIONS (7)
  - Procedural intestinal perforation [Recovering/Resolving]
  - Septic shock [Recovering/Resolving]
  - Dyspnoea [Unknown]
  - Procedural pain [Unknown]
  - Device leakage [Recovered/Resolved]
  - Device connection issue [Recovered/Resolved]
  - Tracheostomy [Unknown]

NARRATIVE: CASE EVENT DATE: 20220303
